FAERS Safety Report 24679516 (Version 2)
Quarter: 2025Q3

REPORT INFORMATION
  Report Type: Report from Study
  Country: US (occurrence: US)
  Receive Date: 20241129
  Receipt Date: 20250802
  Transmission Date: 20251020
  Serious: Yes (Other)
  Sender: ALEXION PHARMACEUTICALS
  Company Number: US-AstraZeneca-CH-00752034A

PATIENT
  Sex: Female
  Weight: 62.142 kg

DRUGS (1)
  1. OSIMERTINIB [Suspect]
     Active Substance: OSIMERTINIB
     Indication: Lung neoplasm malignant
     Dates: start: 20241107

REACTIONS (4)
  - Muscle spasms [Not Recovered/Not Resolved]
  - Dry eye [Unknown]
  - Visual impairment [Unknown]
  - Neuropathy peripheral [Unknown]
